FAERS Safety Report 13138666 (Version 1)
Quarter: 2017Q1

REPORT INFORMATION
  Report Type: Report from Study
  Country: US (occurrence: US)
  Receive Date: 20170123
  Receipt Date: 20170123
  Transmission Date: 20170428
  Serious: No
  Sender: FDA-Public Use
  Company Number: GXBR2016US003546

PATIENT
  Age: 32 Year
  Sex: Female

DRUGS (1)
  1. GLATOPA [Suspect]
     Active Substance: GLATIRAMER ACETATE
     Indication: MULTIPLE SCLEROSIS
     Dosage: 20 MG, QD
     Route: 065
     Dates: start: 201611

REACTIONS (4)
  - Dyspnoea [Recovered/Resolved]
  - Immediate post-injection reaction [Recovered/Resolved]
  - Chest pain [Recovered/Resolved]
  - Flushing [Recovering/Resolving]

NARRATIVE: CASE EVENT DATE: 20161207
